FAERS Safety Report 9420151 (Version 1)
Quarter: 2013Q3

REPORT INFORMATION
  Report Type: Spontaneous
  Country: US (occurrence: None)
  Receive Date: 20130723
  Receipt Date: 20130723
  Transmission Date: 20140515
  Serious: Yes (Hospitalization)
  Sender: FDA-Public Use
  Company Number: None

PATIENT
  Age: 71 Year
  Sex: Male
  Weight: 95.6 kg

DRUGS (2)
  1. IBUPROFEN [Suspect]
     Indication: PAIN
     Dates: start: 20130709, end: 20130714
  2. CLOPIDOGREL [Suspect]
     Indication: LOCAL SWELLING
     Dosage: 75 MG EVERY DAY PO
     Route: 048
     Dates: start: 20120827

REACTIONS (7)
  - Anaemia [None]
  - Gastric haemorrhage [None]
  - Blood urea increased [None]
  - Blood creatinine increased [None]
  - Pain in extremity [None]
  - Arthralgia [None]
  - Oedema [None]
